FAERS Safety Report 11230723 (Version 3)
Quarter: 2015Q3

REPORT INFORMATION
  Report Type: Report from Study
  Country: US (occurrence: US)
  Receive Date: 20150701
  Receipt Date: 20150722
  Transmission Date: 20151125
  Serious: Yes (Death, Other)
  Sender: FDA-Public Use
  Company Number: US-009507513-1506USA010313

PATIENT
  Age: 61 Year
  Sex: Male

DRUGS (2)
  1. ALIROCUMAB [Suspect]
     Active Substance: ALIROCUMAB
     Dosage: 75 MG (IN 1 ML VOLUME), EVERY  2 WEEKS (Q2W)
     Route: 058
  2. EZETIMIBE. [Suspect]
     Active Substance: EZETIMIBE
     Dosage: 10 MG, QD
     Route: 048

REACTIONS (1)
  - Completed suicide [Fatal]
